FAERS Safety Report 12876558 (Version 1)
Quarter: 2016Q4

REPORT INFORMATION
  Report Type: Spontaneous
  Country: ES (occurrence: ES)
  Receive Date: 20161024
  Receipt Date: 20161024
  Transmission Date: 20170207
  Serious: Yes (Other)
  Sender: FDA-Public Use
  Company Number: ES-BAYER-2016-198722

PATIENT
  Age: 20 Year
  Sex: Female

DRUGS (6)
  1. DIANE (CYPROTERONE ACETATE\ETHINYL ESTRADIOL) [Suspect]
     Active Substance: CYPROTERONE ACETATE\ETHINYL ESTRADIOL
     Indication: INFECTIVE PULMONARY EXACERBATION OF CYSTIC FIBROSIS
     Dosage: UNK
     Route: 048
     Dates: start: 200903, end: 200905
  2. CEFTAZIDIME. [Concomitant]
     Active Substance: CEFTAZIDIME
     Indication: INFECTIVE PULMONARY EXACERBATION OF CYSTIC FIBROSIS
     Dosage: UNK
     Route: 041
     Dates: start: 200802, end: 200905
  3. IMIPENEM [Concomitant]
     Active Substance: IMIPENEM
     Indication: INFECTIVE PULMONARY EXACERBATION OF CYSTIC FIBROSIS
     Dosage: UNK
     Route: 041
     Dates: start: 200802, end: 200905
  4. YASMIN DIARIO [Suspect]
     Active Substance: DROSPIRENONE\ETHINYL ESTRADIOL
     Indication: INFECTIVE PULMONARY EXACERBATION OF CYSTIC FIBROSIS
     Dosage: UNK
     Route: 048
     Dates: start: 200802, end: 200902
  5. LINEZOLID. [Concomitant]
     Active Substance: LINEZOLID
     Indication: INFECTIVE PULMONARY EXACERBATION OF CYSTIC FIBROSIS
     Dosage: UNK
     Route: 041
     Dates: start: 200802, end: 200905
  6. TRIMETOPRIM + SULFAMETOXAZOL [Concomitant]
     Active Substance: SULFAMETHOXAZOLE\TRIMETHOPRIM
     Indication: INFECTIVE PULMONARY EXACERBATION OF CYSTIC FIBROSIS
     Dosage: UNK
     Route: 041
     Dates: start: 200802, end: 200905

REACTIONS (7)
  - Stenotrophomonas test positive [None]
  - Drug ineffective for unapproved indication [None]
  - Pancreatitis acute [None]
  - Weight increased [None]
  - Infective pulmonary exacerbation of cystic fibrosis [Recovered/Resolved]
  - Off label use [None]
  - Pseudomonas test positive [None]

NARRATIVE: CASE EVENT DATE: 200802
